FAERS Safety Report 15518769 (Version 1)
Quarter: 2018Q4

REPORT INFORMATION
  Report Type: Spontaneous
  Country: US (occurrence: US)
  Receive Date: 20181017
  Receipt Date: 20181017
  Transmission Date: 20190205
  Serious: No
  Sender: FDA-Public Use
  Company Number: US-SA-2018SA287007

PATIENT
  Age: 79 Year
  Sex: Male

DRUGS (12)
  1. HYDROXYZINE [Concomitant]
     Active Substance: HYDROXYZINE HYDROCHLORIDE
  2. SILDENAFIL CITRATE. [Concomitant]
     Active Substance: SILDENAFIL CITRATE
  3. TRIAMCINOLONE ACETONIDE. [Concomitant]
     Active Substance: TRIAMCINOLONE ACETONIDE
  4. TELMISARTAN. [Concomitant]
     Active Substance: TELMISARTAN
  5. FENOFIBRATE. [Concomitant]
     Active Substance: FENOFIBRATE
  6. MUPIROCIN. [Concomitant]
     Active Substance: MUPIROCIN
  7. VESICARE [Concomitant]
     Active Substance: SOLIFENACIN SUCCINATE
  8. DUPIXENT [Suspect]
     Active Substance: DUPILUMAB
     Indication: DERMATITIS ATOPIC
     Dosage: 1 DF, QOW
  9. PERMETHRIN. [Concomitant]
     Active Substance: PERMETHRIN
  10. IVERMECTIN. [Concomitant]
     Active Substance: IVERMECTIN
  11. OLOPATADINE. [Concomitant]
     Active Substance: OLOPATADINE
  12. METFORMIN [Concomitant]
     Active Substance: METFORMIN HYDROCHLORIDE

REACTIONS (1)
  - Skin disorder [Unknown]
